FAERS Safety Report 9758356 (Version 3)
Quarter: 2014Q1

REPORT INFORMATION
  Report Type: Other
  Country: IE (occurrence: IE)
  Receive Date: 20131216
  Receipt Date: 20140131
  Transmission Date: 20141002
  Serious: Yes (Other)
  Sender: FDA-Public Use
  Company Number: IE-SHIRE-ALL1-2013-08598

PATIENT
  Age: 8 Year
  Sex: Male
  Weight: 34.3 kg

DRUGS (5)
  1. ELAPRASE [Suspect]
     Indication: MUCOPOLYSACCHARIDOSIS II
     Dosage: 18 MG, 1X/2WKS
     Route: 041
     Dates: start: 20130312
  2. ELAPRASE [Suspect]
     Dosage: 18 MG, 1X/WEEK
     Route: 041
     Dates: start: 20070823
  3. RITALIN [Concomitant]
     Indication: PRODUCT USED FOR UNKNOWN INDICATION
     Dosage: UNK UNK, 3X/DAY:TID
     Route: 065
  4. CALPOL [Concomitant]
     Indication: PREMEDICATION
     Dosage: UNK, UNKNOWN
     Route: 065
  5. MELATONIN [Concomitant]
     Indication: PRODUCT USED FOR UNKNOWN INDICATION
     Dosage: UNK, UNKNOWN (NIGHT)
     Route: 065

REACTIONS (2)
  - Feeling cold [Unknown]
  - Cyanosis [Unknown]
